FAERS Safety Report 4384242-X (Version None)
Quarter: 2004Q2

REPORT INFORMATION
  Report Type: 
  Country: None (occurrence: None)
  Receive Date: 20040624
  Receipt Date: 20040616
  Transmission Date: 20050107
  Serious: Yes (Other)
  Sender: FDA-Public Use
  Company Number: US-BRISTOL-MYERS SQUIBB COMPANY-12617130

PATIENT
  Age: 74 Year
  Sex: Male
  Weight: 77 kg

DRUGS (3)
  1. PRAVACHOL [Suspect]
     Indication: BLOOD CHOLESTEROL INCREASED
     Dosage: DOSAGE DECREASED TO 20 MG/DAY ^3 MONTHS AGO^; STOPPED ON 14-JUN-2004 DUE TO SCHEDULED COLONOSCOPY.
     Route: 048
  2. ASPIRIN [Concomitant]
  3. ICAPS [Concomitant]

REACTIONS (3)
  - ANAEMIA [None]
  - RED BLOOD CELL COUNT DECREASED [None]
  - WHITE BLOOD CELL COUNT DECREASED [None]
